FAERS Safety Report 15979038 (Version 1)
Quarter: 2019Q1

REPORT INFORMATION
  Report Type: Spontaneous
  Country: ES (occurrence: ES)
  Receive Date: 20190219
  Receipt Date: 20190219
  Transmission Date: 20190418
  Serious: Yes (Hospitalization, Other)
  Sender: FDA-Public Use
  Company Number: ES-LUPIN PHARMACEUTICALS INC.-2019-00919

PATIENT
  Age: 31 Year
  Sex: Female

DRUGS (9)
  1. TIZANIDINE. [Interacting]
     Active Substance: TIZANIDINE
     Dosage: 2 MILLIGRAM (EVERY 3 HOURS) (16 MG DAILY)
     Route: 065
  2. DIAZEPAM. [Interacting]
     Active Substance: DIAZEPAM
     Dosage: 10 MILLIGRAM
     Route: 060
  3. TIZANIDINE. [Interacting]
     Active Substance: TIZANIDINE
     Dosage: 2 MILLIGRAM, BID
     Route: 065
  4. SERTRALINE [Suspect]
     Active Substance: SERTRALINE HYDROCHLORIDE
     Indication: MIXED ANXIETY AND DEPRESSIVE DISORDER
     Dosage: 100 MILLIGRAM, QD
     Route: 065
  5. TIZANIDINE. [Interacting]
     Active Substance: TIZANIDINE
     Indication: MUSCLE CONTRACTURE
     Dosage: 2 MILLIGRAM, TID
     Route: 065
     Dates: start: 201605
  6. TIZANIDINE. [Interacting]
     Active Substance: TIZANIDINE
     Dosage: 2 MILLIGRAM, QD
     Route: 065
  7. TIZANIDINE. [Interacting]
     Active Substance: TIZANIDINE
     Dosage: 2 MILLIGRAM, QD
     Route: 065
  8. TIZANIDINE. [Interacting]
     Active Substance: TIZANIDINE
     Dosage: 2 MILLIGRAM, TID
     Route: 065
  9. DIAZEPAM. [Interacting]
     Active Substance: DIAZEPAM
     Indication: MIXED ANXIETY AND DEPRESSIVE DISORDER
     Dosage: 2.5 MILLIGRAM, TID
     Route: 065

REACTIONS (2)
  - Sinus tachycardia [Recovering/Resolving]
  - Drug interaction [Unknown]
